FAERS Safety Report 17540246 (Version 3)
Quarter: 2020Q1

REPORT INFORMATION
  Report Type: Spontaneous
  Country: US (occurrence: US)
  Receive Date: 20200313
  Receipt Date: 20200324
  Transmission Date: 20200409
  Serious: Yes (Other)
  Sender: FDA-Public Use
  Company Number: US-CIPLA LTD.-2020US01569

PATIENT

DRUGS (36)
  1. LAMIVUDINE. [Suspect]
     Active Substance: LAMIVUDINE
     Dosage: UNK
     Route: 065
     Dates: start: 2015
  2. DOLUTEGRAVIR [Suspect]
     Active Substance: DOLUTEGRAVIR
     Dosage: 50 MILLIGRAM, BID, TABLETS
     Route: 048
     Dates: start: 201705
  3. DOLUTEGRAVIR [Suspect]
     Active Substance: DOLUTEGRAVIR
     Dosage: 50 MILLIGRAM, BID, TABLETS
     Route: 048
     Dates: start: 201709
  4. DOLUTEGRAVIR [Suspect]
     Active Substance: DOLUTEGRAVIR
     Dosage: 50 MILLIGRAM, BID, TABLETS
     Route: 048
     Dates: start: 201804
  5. DOLUTEGRAVIR [Suspect]
     Active Substance: DOLUTEGRAVIR
     Dosage: 50 MILLIGRAM, BID, TABLETS
     Route: 048
     Dates: start: 201807
  6. RILPIVIRINE [Suspect]
     Active Substance: RILPIVIRINE
     Dosage: UNK
     Route: 065
     Dates: start: 2015
  7. ABACAVIR. [Suspect]
     Active Substance: ABACAVIR
     Indication: HIV INFECTION
     Dosage: 30 ML, UNK
     Route: 065
     Dates: start: 201410
  8. OMEPRAZOLE. [Concomitant]
     Active Substance: OMEPRAZOLE
     Indication: EOSINOPHILIC OESOPHAGITIS
     Dosage: 40 MILLIGRAM, DAILY
     Route: 048
  9. EMTRICITABINE [Concomitant]
     Active Substance: EMTRICITABINE
     Dosage: 24 MILLILITER, DAILY
     Route: 048
     Dates: start: 201802
  10. EMTRICITABINE [Concomitant]
     Active Substance: EMTRICITABINE
     Dosage: 24 MILLILITER, DAILY
     Route: 048
     Dates: start: 201807
  11. EMTRICITABINE [Concomitant]
     Active Substance: EMTRICITABINE
     Dosage: 24 MILLILITER, DAILY
     Route: 048
     Dates: start: 201804
  12. TENOFOVIR [Suspect]
     Active Substance: TENOFOVIR
     Indication: HIV INFECTION
     Dosage: 300 MILLIGRAM, DAILY
     Route: 048
     Dates: start: 201512
  13. DOLUTEGRAVIR [Suspect]
     Active Substance: DOLUTEGRAVIR
     Dosage: 50 MILLIGRAM, BID, TABLETS
     Route: 048
     Dates: start: 201704
  14. DOLUTEGRAVIR [Suspect]
     Active Substance: DOLUTEGRAVIR
     Dosage: 50 MILLIGRAM, BID, TABLETS
     Route: 048
     Dates: start: 201802
  15. DOLUTEGRAVIR [Suspect]
     Active Substance: DOLUTEGRAVIR
     Dosage: 50 MILLIGRAM, BID, TABLETS
     Route: 048
     Dates: start: 201901
  16. ABACAVIR. [Suspect]
     Active Substance: ABACAVIR
     Dosage: 30 MILLILITER, DAILY
     Route: 048
     Dates: start: 201901
  17. EMTRICITABINE [Concomitant]
     Active Substance: EMTRICITABINE
     Dosage: 24 MILLILITER, DAILY
     Route: 048
     Dates: start: 201705
  18. EMTRICITABINE [Concomitant]
     Active Substance: EMTRICITABINE
     Dosage: 24 MILLILITER, DAILY
     Route: 048
     Dates: start: 201709
  19. DOLUTEGRAVIR [Suspect]
     Active Substance: DOLUTEGRAVIR
     Dosage: 50 MILLIGRAM, BID, TABLETS
     Route: 048
     Dates: start: 201810
  20. RILPIVIRINE [Suspect]
     Active Substance: RILPIVIRINE
     Indication: HIV INFECTION
     Dosage: 25 MG, UNK
     Route: 065
     Dates: start: 201410, end: 201410
  21. ABACAVIR. [Suspect]
     Active Substance: ABACAVIR
     Dosage: 30 MILLILITER, DAILY
     Route: 048
     Dates: start: 201804
  22. ABACAVIR. [Suspect]
     Active Substance: ABACAVIR
     Dosage: 30 MILLILITER, DAILY
     Route: 048
     Dates: start: 201807
  23. LAMIVUDINE. [Suspect]
     Active Substance: LAMIVUDINE
     Indication: HIV INFECTION
     Dosage: 24 MILLILITER, DAILY
     Route: 048
     Dates: start: 201410
  24. TENOFOVIR [Suspect]
     Active Substance: TENOFOVIR
     Dosage: UNK
     Route: 065
     Dates: start: 201705, end: 2017
  25. ABACAVIR. [Suspect]
     Active Substance: ABACAVIR
     Dosage: 30 MILLILITER, DAILY
     Route: 048
     Dates: start: 201709
  26. EMTRICITABINE [Concomitant]
     Active Substance: EMTRICITABINE
     Indication: HIV INFECTION
     Dosage: 24 MILLILITER, DAILY
     Route: 048
     Dates: start: 201704
  27. ABACAVIR. [Suspect]
     Active Substance: ABACAVIR
     Dosage: 30 MILLILITER, DAILY
     Route: 048
     Dates: start: 201802
  28. LAMIVUDINE/ZIDOVUDINE [Suspect]
     Active Substance: LAMIVUDINE\ZIDOVUDINE
     Indication: HIV INFECTION
     Dosage: 300/150 MG, BID
     Route: 048
     Dates: start: 201512
  29. DOLUTEGRAVIR [Suspect]
     Active Substance: DOLUTEGRAVIR
     Indication: HIV INFECTION
     Dosage: 50 MILLIGRAM, BID, TABLETS
     Route: 048
     Dates: start: 201512
  30. ABACAVIR. [Suspect]
     Active Substance: ABACAVIR
     Dosage: 30 MILLILITER, DAILY
     Route: 048
     Dates: start: 201704
  31. ABACAVIR. [Suspect]
     Active Substance: ABACAVIR
     Dosage: 30 MILLILITER, DAILY
     Route: 048
     Dates: start: 201705
  32. ABACAVIR. [Suspect]
     Active Substance: ABACAVIR
     Dosage: 30 MILLILITER, DAILY
     Route: 048
     Dates: start: 201810
  33. EMTRICITABINE [Concomitant]
     Active Substance: EMTRICITABINE
     Dosage: 24 MILLILITER, DAILY
     Route: 048
     Dates: start: 201810
  34. EMTRICITABINE [Concomitant]
     Active Substance: EMTRICITABINE
     Dosage: 24 MILLILITER, DAILY
     Route: 048
     Dates: start: 201901
  35. ABACAVIR. [Suspect]
     Active Substance: ABACAVIR
     Dosage: UNK
     Route: 065
     Dates: start: 2015
  36. TENOFOVIR DISOPROXIL FUMARATE. [Suspect]
     Active Substance: TENOFOVIR DISOPROXIL FUMARATE
     Indication: HIV INFECTION
     Dosage: (40MG/G) 7.5 SCOOPS WITH SOFT FOOD
     Route: 048
     Dates: start: 201704, end: 2017

REACTIONS (7)
  - Drug intolerance [Unknown]
  - Dysphagia [Unknown]
  - Nausea [Unknown]
  - Treatment noncompliance [Unknown]
  - Virologic failure [Recovering/Resolving]
  - Product taste abnormal [Unknown]
  - Wrong technique in product usage process [Unknown]
